FAERS Safety Report 25597121 (Version 1)
Quarter: 2025Q3

REPORT INFORMATION
  Report Type: Spontaneous
  Country: CN (occurrence: CN)
  Receive Date: 20250723
  Receipt Date: 20250723
  Transmission Date: 20251021
  Serious: Yes (Hospitalization, Other)
  Sender: EISAI
  Company Number: CN-Eisai-EC-2025-193483

PATIENT
  Age: 50 Year
  Sex: Male

DRUGS (1)
  1. LENVATINIB [Suspect]
     Active Substance: LENVATINIB
     Indication: Pancreatic neuroendocrine tumour
     Dates: start: 2023, end: 202506

REACTIONS (4)
  - Cerebral infarction [Recovering/Resolving]
  - Nephrotic syndrome [Recovering/Resolving]
  - Hypothyroidism [Unknown]
  - Hypertension [Unknown]

NARRATIVE: CASE EVENT DATE: 20250101
